FAERS Safety Report 9046566 (Version 1)
Quarter: 2013Q1

REPORT INFORMATION
  Report Type: Spontaneous
  Country: US (occurrence: None)
  Receive Date: 20130128
  Receipt Date: 20130128
  Transmission Date: 20140127
  Serious: Yes (Other)
  Sender: FDA-Public Use
  Company Number: None

PATIENT
  Age: 37 Year
  Sex: Female
  Weight: 93.9 kg

DRUGS (4)
  1. INVEGA [Suspect]
     Indication: BIPOLAR I DISORDER
     Route: 002
     Dates: start: 20070501, end: 20120727
  2. LAMICTAL [Suspect]
     Route: 002
     Dates: start: 20040404, end: 20120727
  3. INVEGA [Concomitant]
  4. LAMICTAL [Concomitant]

REACTIONS (2)
  - Weight increased [None]
  - Diabetes mellitus [None]
